FAERS Safety Report 8300811-6 (Version None)
Quarter: 2012Q2

REPORT INFORMATION
  Report Type: 
  Country: None (occurrence: None)
  Receive Date: 20120420
  Receipt Date: 20120419
  Transmission Date: 20120825
  Serious: Yes (Other)
  Sender: FDA-Public Use
  Company Number: PHHY2011NL90009

PATIENT
  Sex: Male

DRUGS (18)
  1. ZOMETA [Suspect]
     Dosage: 4 MG/ 100 ML, 1X PER 28 DAYS
     Dates: start: 20120314
  2. FLUTICASONE PROPIONATE/SALMETEROL [Concomitant]
  3. ZOMETA [Suspect]
     Dosage: 4 MG/ 100 ML, 1X PER 28 DAYS
     Dates: start: 20110914
  4. AMLODIPINE [Concomitant]
  5. BICALUTAMIDE [Concomitant]
  6. DIOVAN [Concomitant]
  7. ZOLADEX [Concomitant]
  8. CYMBALTA [Concomitant]
  9. ZOMETA [Suspect]
     Indication: PROSTATE CANCER METASTATIC
     Dosage: 4 MG/ 100 ML, 1X PER 28 DAYS
     Dates: start: 20110624
  10. BISOPROLOL FUMARATE [Concomitant]
  11. ACENOCOUMAROL [Concomitant]
  12. AVODART [Concomitant]
  13. METFORMIN HCL [Concomitant]
  14. NEXIUM [Concomitant]
  15. COLEX [Concomitant]
  16. ZOMETA [Suspect]
     Dosage: 4 MG/ 100 ML, 1X PER 28 DAYS
     Dates: start: 20111012
  17. CALCIUM CARBONATE [Concomitant]
  18. LANOXIN [Concomitant]

REACTIONS (3)
  - NEOPLASM MALIGNANT [None]
  - TERMINAL STATE [None]
  - NEOPLASM PROGRESSION [None]
